FAERS Safety Report 13948680 (Version 1)
Quarter: 2017Q3

REPORT INFORMATION
  Report Type: Spontaneous
  Country: DK (occurrence: DK)
  Receive Date: 20170908
  Receipt Date: 20170908
  Transmission Date: 20171128
  Serious: Yes (Life-Threatening, Hospitalization)
  Sender: FDA-Public Use
  Company Number: DK-JNJFOC-20170903927

PATIENT
  Age: 66 Year
  Sex: Male
  Weight: 71 kg

DRUGS (3)
  1. RITUXIMAB. [Concomitant]
     Active Substance: RITUXIMAB
     Indication: MANTLE CELL LYMPHOMA STAGE IV
     Route: 065
  2. IMBRUVICA [Suspect]
     Active Substance: IBRUTINIB
     Indication: MANTLE CELL LYMPHOMA STAGE IV
     Route: 048
     Dates: start: 20170526, end: 20170728
  3. PREDNISOLONE. [Suspect]
     Active Substance: PREDNISOLONE
     Indication: MANTLE CELL LYMPHOMA STAGE IV
     Dosage: 75-100 MG ONCE DAILY
     Route: 048
     Dates: start: 20170612, end: 20170728

REACTIONS (5)
  - Bronchopulmonary aspergillosis [Recovering/Resolving]
  - Monocyte count decreased [Recovering/Resolving]
  - Nervous system disorder [Recovering/Resolving]
  - Macrophages decreased [Recovering/Resolving]
  - Cerebral aspergillosis [Recovering/Resolving]

NARRATIVE: CASE EVENT DATE: 201707
